FAERS Safety Report 8811845 (Version 1)
Quarter: 2012Q4

REPORT INFORMATION
  Report Type: 
  Country: CN (occurrence: CN)
  Receive Date: 20120927
  Receipt Date: 20120927
  Transmission Date: 20130627
  Serious: Yes (Other)
  Sender: FDA-Public Use
  Company Number: CN-GLAXOSMITHKLINE-B0832760A

PATIENT
  Sex: Male
  Weight: 60 kg

DRUGS (1)
  1. LAMIVUDINE [Suspect]
     Indication: ANTIVIRAL TREATMENT
     Dosage: .1G Per day
     Route: 048
     Dates: start: 20091102, end: 20091105

REACTIONS (3)
  - Anaphylactoid reaction [Recovered/Resolved]
  - Dry mouth [Recovered/Resolved]
  - Pruritus generalised [Recovered/Resolved]
